FAERS Safety Report 11057098 (Version 2)
Quarter: 2015Q2

REPORT INFORMATION
  Report Type: Spontaneous
  Country: US (occurrence: US)
  Receive Date: 20150422
  Receipt Date: 20150528
  Transmission Date: 20150821
  Serious: Yes (Hospitalization)
  Sender: FDA-Public Use
  Company Number: US-INCYTE CORPORATION-2015IN001585

PATIENT
  Age: 67 Year
  Sex: Female
  Weight: 68.03 kg

DRUGS (19)
  1. ASPIRIN. [Concomitant]
     Active Substance: ASPIRIN
  2. TRAMADOL [Concomitant]
     Active Substance: TRAMADOL
  3. CENTRUM SILVER                     /02363801/ [Concomitant]
     Active Substance: VITAMINS
  4. CATAFLAM                           /00372302/ [Concomitant]
     Active Substance: DICLOFENAC POTASSIUM
  5. ZOFRAN                             /00955301/ [Concomitant]
     Active Substance: ONDANSETRON HYDROCHLORIDE
  6. OCUVITE LUTEIN                     /06812801/ [Concomitant]
  7. CALCIUM [Concomitant]
     Active Substance: CALCIUM
  8. VITAMIN B [Concomitant]
     Active Substance: VITAMIN B
  9. DICHLOROACETIC ACID [Concomitant]
     Active Substance: DICHLOROACETIC ACID
  10. JAKAFI [Suspect]
     Active Substance: RUXOLITINIB
     Indication: MYELOFIBROSIS
     Dosage: 20 MG, BID
     Route: 048
     Dates: start: 20140527, end: 20150326
  11. PANTOPRAZOLE [Concomitant]
     Active Substance: PANTOPRAZOLE SODIUM
  12. HYDROXYZINE HCL [Concomitant]
     Active Substance: HYDROXYZINE HYDROCHLORIDE
  13. MIRALAX [Concomitant]
     Active Substance: POLYETHYLENE GLYCOL 3350
  14. MIDRIN                             /00450801/ [Concomitant]
     Active Substance: ACETAMINOPHEN\DICHLORALPHENAZONE\ISOMETHEPTENE HYDROCHLORIDE
  15. FOLIC ACID. [Concomitant]
     Active Substance: FOLIC ACID
  16. HYDROCODONE [Concomitant]
     Active Substance: HYDROCODONE
  17. VITAMIN D                          /00107901/ [Concomitant]
     Active Substance: ERGOCALCIFEROL
  18. B COMPLEX                          /00212701/ [Concomitant]
  19. IBUPROFEN. [Concomitant]
     Active Substance: IBUPROFEN

REACTIONS (5)
  - Anaemia [Recovering/Resolving]
  - Cardiac failure congestive [Recovering/Resolving]
  - Pulmonary fibrosis [Recovering/Resolving]
  - Atrial fibrillation [Recovering/Resolving]
  - Supraventricular tachycardia [Unknown]

NARRATIVE: CASE EVENT DATE: 20150326
